FAERS Safety Report 11329350 (Version 2)
Quarter: 2015Q3

REPORT INFORMATION
  Report Type: Report from Study
  Country: US (occurrence: US)
  Receive Date: 20150803
  Receipt Date: 20150821
  Transmission Date: 20151125
  Serious: No
  Sender: FDA-Public Use
  Company Number: US-AMGEN-USASL2015075909

PATIENT
  Age: 47 Year
  Sex: Male

DRUGS (1)
  1. ENBREL [Suspect]
     Active Substance: ETANERCEPT
     Indication: PSORIATIC ARTHROPATHY
     Dosage: 50 MG, 2 TIMES/WK
     Route: 065
     Dates: start: 20150623

REACTIONS (8)
  - Injection site pruritus [Recovering/Resolving]
  - Injection site swelling [Unknown]
  - Injection site pain [Unknown]
  - Injection site warmth [Recovering/Resolving]
  - Injection site reaction [Recovering/Resolving]
  - Intentional product misuse [Unknown]
  - Injection site urticaria [Recovering/Resolving]
  - Injection site discolouration [Unknown]

NARRATIVE: CASE EVENT DATE: 2015
